FAERS Safety Report 6138266-2 (Version None)
Quarter: 2009Q1

REPORT INFORMATION
  Report Type: 
  Country: None (occurrence: None)
  Receive Date: 20090327
  Receipt Date: 20090312
  Transmission Date: 20090719
  Serious: Yes (Hospitalization)
  Sender: FDA-Public Use
  Company Number: 2009PV037726

PATIENT
  Age: 60 Year
  Sex: Female
  Weight: 101.6057 kg

DRUGS (9)
  1. SYMLIN [Suspect]
     Indication: TYPE 2 DIABETES MELLITUS
     Dosage: 120 MCG; TID; SC, 60 MCG; TID; SC
     Route: 058
     Dates: end: 20090209
  2. SYMLIN [Suspect]
     Indication: TYPE 2 DIABETES MELLITUS
     Dosage: 120 MCG; TID; SC, 60 MCG; TID; SC
     Route: 058
     Dates: start: 20081118
  3. KEFLEX [Suspect]
     Indication: SINUSITIS
     Dosage: ; PO
     Route: 048
     Dates: start: 20090101, end: 20090107
  4. HUMALOG MIX [Concomitant]
  5. HYZAAR [Concomitant]
  6. ANTARA (MICRONIZED) [Concomitant]
  7. ASPIRIN [Concomitant]
  8. ZITHROMYCIN [Concomitant]
  9. CIPROFLOXACIN [Concomitant]

REACTIONS (10)
  - ABDOMINAL DISTENSION [None]
  - CHOLELITHIASIS [None]
  - COOMBS POSITIVE HAEMOLYTIC ANAEMIA [None]
  - DYSPNOEA EXERTIONAL [None]
  - HEPATOMEGALY [None]
  - POLLAKIURIA [None]
  - RED BLOOD CELL COUNT INCREASED [None]
  - SPLENOMEGALY [None]
  - URINE COLOUR ABNORMAL [None]
  - URTICARIA [None]
